FAERS Safety Report 5712524-5 (Version None)
Quarter: 2008Q2

REPORT INFORMATION
  Report Type: 
  Country: None (occurrence: None)
  Receive Date: 20080418
  Receipt Date: 20080407
  Transmission Date: 20081010
  Serious: Yes (Death, Hospitalization)
  Sender: FDA-Public Use
  Company Number: 20085002

PATIENT

DRUGS (1)
  1. LIORESAL [Suspect]
     Indication: MUSCLE SPASTICITY
     Dosage: DAILY, INTRATHECAL
     Route: 037

REACTIONS (20)
  - ASCITES [None]
  - BRONCHOPNEUMONIA [None]
  - CONGENITAL ECTOPIC PANCREAS [None]
  - DISSEMINATED INTRAVASCULAR COAGULATION [None]
  - HEPATIC ATROPHY [None]
  - HEPATITIS FULMINANT [None]
  - INTESTINAL CONGESTION [None]
  - JAUNDICE [None]
  - LEIOMYOMA [None]
  - MULTI-ORGAN FAILURE [None]
  - NEPHROLITHIASIS [None]
  - PANCREATIC NECROSIS [None]
  - PERITONITIS [None]
  - PLEURAL EFFUSION [None]
  - PLEURAL FIBROSIS [None]
  - PULMONARY OEDEMA [None]
  - PURULENCE [None]
  - RENAL DISORDER [None]
  - SEPSIS [None]
  - SPLENOMEGALY [None]
